FAERS Safety Report 7539538-7 (Version None)
Quarter: 2011Q2

REPORT INFORMATION
  Report Type: 
  Country: None (occurrence: None)
  Receive Date: 20110610
  Receipt Date: 20110530
  Transmission Date: 20111010
  Serious: Yes (Other)
  Sender: FDA-Public Use
  Company Number: CA-ELI_LILLY_AND_COMPANY-CA201104006846

PATIENT
  Age: 67 Year
  Sex: Female
  Weight: 71.6 kg

DRUGS (5)
  1. FORTEO [Suspect]
     Indication: OSTEOPOROSIS
     Dosage: 20 UG, QD
     Route: 058
     Dates: start: 20100226
  2. CALCIUM CARBONATE [Concomitant]
  3. HYDROCHLOROTHIAZIDE [Concomitant]
     Dosage: 12.5 MG, UNK
  4. VITAMIN D [Concomitant]
     Dosage: 1200 IU, UNK
  5. MULTI-VITAMIN [Concomitant]

REACTIONS (3)
  - DEAFNESS UNILATERAL [None]
  - HEADACHE [None]
  - BACK PAIN [None]
